FAERS Safety Report 16552055 (Version 1)
Quarter: 2019Q3

REPORT INFORMATION
  Report Type: Spontaneous
  Country: VE (occurrence: VE)
  Receive Date: 20190710
  Receipt Date: 20190710
  Transmission Date: 20191004
  Serious: Yes (Other)
  Sender: FDA-Public Use
  Company Number: PHHY2019VE157704

PATIENT
  Age: 14 Year

DRUGS (4)
  1. CISPLATIN. [Suspect]
     Active Substance: CISPLATIN
     Indication: PINEAL GERMINOMA
     Dosage: UNK UNK, 6 CYCLIC
     Route: 065
  2. CARBOPLATIN. [Suspect]
     Active Substance: CARBOPLATIN
     Indication: PINEAL GERMINOMA
     Dosage: UNK UNK, 6 CYCLIC
     Route: 065
  3. ETOPOSIDE. [Suspect]
     Active Substance: ETOPOSIDE
     Indication: PINEAL GERMINOMA
     Dosage: UNK UNK, 6 CYCLIC
     Route: 065
  4. CYCLOPHOSPHAMIDE. [Suspect]
     Active Substance: CYCLOPHOSPHAMIDE
     Indication: PINEAL GERMINOMA
     Dosage: UNK UNK, 6 CYCLIC
     Route: 065

REACTIONS (6)
  - Product use in unapproved indication [Unknown]
  - Malignant mesenteric neoplasm [Unknown]
  - Malignant peritoneal neoplasm [Unknown]
  - Colon cancer [Unknown]
  - Metastases to liver [Unknown]
  - Second primary malignancy [Unknown]
